FAERS Safety Report 26098437 (Version 1)
Quarter: 2025Q4

REPORT INFORMATION
  Report Type: Spontaneous
  Country: EU (occurrence: EU)
  Receive Date: 20251127
  Receipt Date: 20251127
  Transmission Date: 20260117
  Serious: Yes (Other)
  Sender: PFIZER
  Company Number: EU-PFIZER INC-PV202500139035

PATIENT
  Age: 29 Year
  Sex: Male

DRUGS (1)
  1. INFLIXIMAB [Suspect]
     Active Substance: INFLIXIMAB
     Indication: Crohn^s disease
     Dosage: 385 MG, CYCLIC
     Route: 042
     Dates: start: 20250901, end: 20250901

REACTIONS (4)
  - Pallor [Recovered/Resolved]
  - Hypoperfusion [Recovered/Resolved]
  - Hypotension [Recovered/Resolved]
  - Nausea [Recovered/Resolved]

NARRATIVE: CASE EVENT DATE: 20250901
